FAERS Safety Report 7746329-0 (Version None)
Quarter: 2011Q3

REPORT INFORMATION
  Report Type: 
  Country: None (occurrence: None)
  Receive Date: 20110913
  Receipt Date: 20110901
  Transmission Date: 20111222
  Serious: Yes (Other)
  Sender: FDA-Public Use
  Company Number: FR-ROCHE-800662

PATIENT
  Sex: Female
  Weight: 50 kg

DRUGS (15)
  1. METOCLOPRAMIDE [Suspect]
     Indication: PREMEDICATION
     Route: 042
     Dates: start: 20110621
  2. PACLITAXEL [Suspect]
     Dosage: SECOND COURSE. PERMANENTLY DISCONTINUED.
     Route: 042
     Dates: start: 20110718
  3. ZANTAC [Suspect]
     Indication: PREMEDICATION
     Route: 042
     Dates: start: 20110621
  4. EMEND [Suspect]
     Indication: PREMEDICATION
     Route: 048
     Dates: start: 20110621
  5. CARBOPLATIN [Suspect]
     Route: 042
     Dates: start: 20110812
  6. DOCETAXEL [Concomitant]
     Dates: start: 20110812
  7. KYTRIL [Suspect]
     Indication: PREMEDICATION
     Dosage: FREQUENCY: ONCE, DOSE: 3MG/3ML
     Route: 042
     Dates: start: 20110621, end: 20110621
  8. PACLITAXEL [Suspect]
     Dosage: FIRST COURSE
     Route: 042
     Dates: start: 20110621, end: 20110621
  9. XELODA [Concomitant]
     Dates: start: 20100801
  10. CARBOPLATIN [Suspect]
     Dosage: FIRST COURSE
     Route: 042
     Dates: start: 20110621, end: 20110621
  11. FLUOROURACIL [Concomitant]
     Indication: METASTASES TO LUNG
     Dates: start: 20100801
  12. METHYLPREDNISOLONE [Suspect]
     Indication: PREMEDICATION
     Route: 042
     Dates: start: 20110621
  13. DESLORATADINE [Suspect]
     Indication: PREMEDICATION
     Route: 048
     Dates: start: 20110621
  14. DOCETAXEL [Concomitant]
     Dates: start: 20100801
  15. CISPLATIN [Concomitant]
     Dates: start: 20100801

REACTIONS (5)
  - NAUSEA [None]
  - HYPERHIDROSIS [None]
  - ABDOMINAL PAIN [None]
  - HYPOTENSION [None]
  - VOMITING [None]
